FAERS Safety Report 14630555 (Version 2)
Quarter: 2018Q2

REPORT INFORMATION
  Report Type: Report from Study
  Country: DE (occurrence: DE)
  Receive Date: 20180313
  Receipt Date: 20180411
  Transmission Date: 20180711
  Serious: Yes (Hospitalization, Other)
  Sender: FDA-Public Use
  Company Number: PHHY2018DE037341

PATIENT
  Age: 80 Year
  Sex: Male
  Weight: 80 kg

DRUGS (2)
  1. LEUPRONE HEXAL [Suspect]
     Active Substance: LEUPROLIDE ACETATE
     Dosage: 5 MG, UNK
     Route: 058
     Dates: start: 20180213
  2. LEUPRONE HEXAL [Suspect]
     Active Substance: LEUPROLIDE ACETATE
     Indication: PROSTATE CANCER
     Dosage: 5 MG, FOR 4 WEEKS
     Route: 058
     Dates: start: 20170222

REACTIONS (6)
  - Blood pressure systolic increased [Not Recovered/Not Resolved]
  - Blood testosterone decreased [Unknown]
  - Blood cholesterol increased [Unknown]
  - Arrhythmia [Not Recovered/Not Resolved]
  - Bradycardia [Not Recovered/Not Resolved]
  - Low density lipoprotein increased [Unknown]

NARRATIVE: CASE EVENT DATE: 20171220
